FAERS Safety Report 15255358 (Version 3)
Quarter: 2019Q1

REPORT INFORMATION
  Report Type: Spontaneous
  Country: US (occurrence: US)
  Receive Date: 20180808
  Receipt Date: 20190305
  Transmission Date: 20190417
  Serious: Yes (Other)
  Sender: FDA-Public Use
  Company Number: US-LEXICON PHARMACEUTICALS, INC-18-1606-00930

PATIENT
  Sex: Female

DRUGS (11)
  1. CREON [Concomitant]
     Active Substance: PANCRELIPASE AMYLASE\PANCRELIPASE LIPASE\PANCRELIPASE PROTEASE
  2. SOMATULINE DEPOT [Concomitant]
     Active Substance: LANREOTIDE ACETATE
  3. TELOTRISTAT ETHYL [Suspect]
     Active Substance: TELOTRISTAT ETHYL
     Indication: CARCINOID SYNDROME
     Route: 048
     Dates: start: 20180430
  4. TELOTRISTAT ETHYL [Suspect]
     Active Substance: TELOTRISTAT ETHYL
     Indication: CARCINOID TUMOUR OF THE DUODENUM
     Route: 048
  5. BENZONATATE. [Concomitant]
     Active Substance: BENZONATATE
  6. COQ10 [Concomitant]
     Active Substance: UBIDECARENONE
  7. LASIX [Concomitant]
     Active Substance: FUROSEMIDE
  8. HYOSYNE [Concomitant]
     Active Substance: HYOSCYAMINE SULFATE
  9. CARBOPLATIN. [Concomitant]
     Active Substance: CARBOPLATIN
  10. POTASSIMIN [Concomitant]
  11. VALSARTAN. [Concomitant]
     Active Substance: VALSARTAN

REACTIONS (4)
  - Lung neoplasm malignant [Unknown]
  - Abdominal pain [Unknown]
  - Eating disorder symptom [Unknown]
  - Constipation [Unknown]

NARRATIVE: CASE EVENT DATE: 2018
